FAERS Safety Report 10014803 (Version 3)
Quarter: 2014Q2

REPORT INFORMATION
  Report Type: Report from Study
  Country: BR (occurrence: BR)
  Receive Date: 20140317
  Receipt Date: 20140421
  Transmission Date: 20141212
  Serious: Yes (Other)
  Sender: FDA-Public Use
  Company Number: PHHY2014BR031325

PATIENT
  Age: 82 Year
  Sex: Female
  Weight: 70 kg

DRUGS (12)
  1. ACLASTA [Suspect]
     Indication: OSTEOPOROSIS
     Dosage: 5 MG, UNK
     Route: 042
     Dates: start: 201401
  2. GLUCOSAMINE SULFATE [Concomitant]
     Indication: RHEUMATOID ARTHRITIS
     Dosage: 2 DF
     Route: 048
  3. PANTOPRAZOLE [Concomitant]
     Indication: GASTRIC DISORDER
     Dosage: 1 DF, DAILY
     Route: 048
  4. METHOTREXATE [Concomitant]
     Indication: OSTEOPOROSIS
     Dosage: 1 DF, WEEKLY
     Route: 048
  5. METHOTREXATE [Concomitant]
     Indication: RHEUMATOID ARTHRITIS
  6. CRESTOR [Concomitant]
     Indication: BLOOD CHOLESTEROL INCREASED
     Dosage: 1 DF, DAILY
     Route: 048
  7. PRADAXA [Concomitant]
     Indication: THROMBOSIS
     Dosage: 1 DF, DAILY
     Route: 048
     Dates: start: 2013
  8. ANCORON [Concomitant]
     Indication: ATRIAL FIBRILLATION
     Dosage: 1 DF, DAILY
     Route: 048
  9. CARVEDILOL [Concomitant]
     Indication: CARDIAC DISORDER
     Dosage: 2 DF, DAILY
     Route: 048
  10. CARVEDILOL [Concomitant]
     Indication: ARRHYTHMIA
  11. CORUS FA [Concomitant]
     Indication: CARDIAC DISORDER
     Dosage: 1 DF, DAILY
     Route: 048
  12. CORUS FA [Concomitant]
     Indication: ARRHYTHMIA

REACTIONS (8)
  - Fall [Not Recovered/Not Resolved]
  - Lumbar vertebral fracture [Unknown]
  - Hip fracture [Unknown]
  - Cardiac disorder [Unknown]
  - Spinal fracture [Not Recovered/Not Resolved]
  - Fracture pain [Not Recovered/Not Resolved]
  - Blood disorder [Recovered/Resolved]
  - Pain [Unknown]
